FAERS Safety Report 10396663 (Version 3)
Quarter: 2015Q2

REPORT INFORMATION
  Report Type: Spontaneous
  Country: US (occurrence: None)
  Receive Date: 20130815
  Receipt Date: 20150429
  Transmission Date: 20150821
  Serious: Yes (Other)
  Sender: FDA-Public Use
  Company Number: ADR-2012-01638

PATIENT
  Sex: Male

DRUGS (2)
  1. INFUMORPH [Suspect]
     Active Substance: MORPHINE SULFATE
  2. LIORESAL [Suspect]
     Active Substance: BACLOFEN
     Indication: MUSCLE SPASTICITY

REACTIONS (11)
  - Tethered cord syndrome [None]
  - Cauda equina syndrome [None]
  - Arachnoiditis [None]
  - Pain [None]
  - Infusion site mass [None]
  - Infusion site granuloma [None]
  - Muscular weakness [None]
  - Spinal compression fracture [None]
  - Therapeutic response decreased [None]
  - Muscle spasms [None]
  - Hallucination [None]
